FAERS Safety Report 11146348 (Version 1)
Quarter: 2015Q2

REPORT INFORMATION
  Report Type: Spontaneous
  Country: US (occurrence: US)
  Receive Date: 20150528
  Receipt Date: 20150528
  Transmission Date: 20150821
  Serious: No
  Sender: FDA-Public Use
  Company Number: US-PFIZER INC-2015169595

PATIENT
  Age: 56 Year
  Sex: Female
  Weight: 85 kg

DRUGS (1)
  1. LYRICA [Suspect]
     Active Substance: PREGABALIN
     Dosage: 450 MG, 1X/DAY (QD)
     Dates: start: 2011

REACTIONS (3)
  - Drug prescribing error [Unknown]
  - Dysphemia [Unknown]
  - Off label use [Unknown]

NARRATIVE: CASE EVENT DATE: 2011
